FAERS Safety Report 8346659-8 (Version None)
Quarter: 2012Q2

REPORT INFORMATION
  Report Type: 
  Country: None (occurrence: None)
  Receive Date: 20120507
  Receipt Date: 20120507
  Transmission Date: 20120825
  Serious: Yes (Hospitalization)
  Sender: FDA-Public Use
  Company Number: None

PATIENT
  Age: 58 Year
  Sex: Male
  Weight: 75.9 kg

DRUGS (1)
  1. DIVALPROEX SODIUM [Suspect]
     Dosage: 1000 MG HS PO
     Route: 048
     Dates: start: 20120413, end: 20120501

REACTIONS (2)
  - SUICIDE ATTEMPT [None]
  - OVERDOSE [None]
